FAERS Safety Report 25545172 (Version 1)
Quarter: 2025Q3

REPORT INFORMATION
  Report Type: Spontaneous
  Country: EU (occurrence: EU)
  Receive Date: 20250711
  Receipt Date: 20250711
  Transmission Date: 20251021
  Serious: Yes (Other)
  Sender: MYLAN
  Company Number: EU-ROCHE-10000318617

PATIENT
  Age: 66 Year
  Sex: Female

DRUGS (6)
  1. MYCOPHENOLATE MOFETIL [Suspect]
     Active Substance: MYCOPHENOLATE MOFETIL
     Indication: Systemic scleroderma
     Dosage: 2000 MILLIGRAM, QD
  2. RITUXIMAB [Suspect]
     Active Substance: RITUXIMAB
     Indication: Systemic scleroderma
     Dosage: 1000 MILLIGRAM, Q3MONTHS
  3. SILDENAFIL [Concomitant]
     Active Substance: SILDENAFIL
  4. BOSENTAN [Concomitant]
     Active Substance: BOSENTAN
  5. CYCLOPHOSPHAMIDE [Concomitant]
     Active Substance: CYCLOPHOSPHAMIDE
     Indication: Systemic scleroderma
  6. NINTEDANIB [Concomitant]
     Active Substance: NINTEDANIB

REACTIONS (2)
  - Basal cell carcinoma [Unknown]
  - Incision site impaired healing [Unknown]
